FAERS Safety Report 8584237-6 (Version None)
Quarter: 2012Q3

REPORT INFORMATION
  Report Type: 
  Country: None (occurrence: None)
  Receive Date: 20120810
  Receipt Date: 20120808
  Transmission Date: 20120928
  Serious: Yes (Hospitalization)
  Sender: FDA-Public Use
  Company Number: CA-BRISTOL-MYERS SQUIBB COMPANY-16824534

PATIENT
  Age: 64 Year
  Sex: Male

DRUGS (6)
  1. PERINDOPRIL ERBUMINE [Concomitant]
  2. HYDREA [Suspect]
  3. METFORMIN HYDROCHLORIDE [Concomitant]
  4. LASIX [Concomitant]
  5. SPRYCEL [Suspect]
     Indication: CHRONIC MYELOID LEUKAEMIA
     Route: 048
     Dates: start: 20120701
  6. TIAZAC [Concomitant]

REACTIONS (1)
  - PNEUMONIA [None]
